FAERS Safety Report 8557960-7 (Version None)
Quarter: 2012Q3

REPORT INFORMATION
  Report Type: 
  Country: None (occurrence: None)
  Receive Date: 20120801
  Receipt Date: 20120723
  Transmission Date: 20120928
  Serious: Yes (Hospitalization, Disabling)
  Sender: FDA-Public Use
  Company Number: US-ASTRAZENECA-2012SE46919

PATIENT
  Age: 61 Year
  Sex: Female
  Weight: 106.1 kg

DRUGS (5)
  1. CRESTOR [Suspect]
     Indication: BLOOD CHOLESTEROL INCREASED
     Route: 048
  2. AMLODIPINE [Concomitant]
  3. GLIPIZIDE [Concomitant]
  4. INSULIN [Concomitant]
     Indication: BLOOD GLUCOSE ABNORMAL
  5. METOPROLOL TARTRATE [Concomitant]

REACTIONS (8)
  - SENSATION OF HEAVINESS [None]
  - MUSCLE SPASMS [None]
  - ANKLE FRACTURE [None]
  - MUSCULOSKELETAL DISCOMFORT [None]
  - MALAISE [None]
  - GAIT DISTURBANCE [None]
  - PAIN [None]
  - MYALGIA [None]
